FAERS Safety Report 8923365 (Version 1)
Quarter: 2012Q4

REPORT INFORMATION
  Report Type: 
  Country: US (occurrence: US)
  Receive Date: 20121123
  Receipt Date: 20121123
  Transmission Date: 20130627
  Serious: Yes (Other)
  Sender: FDA-Public Use
  Company Number: US-RANBAXY-2012US-62392

PATIENT
  Sex: Female
  Weight: 68.93 kg

DRUGS (4)
  1. ATORVASTATIN [Suspect]
     Indication: BLOOD CHOLESTEROL INCREASED
     Dosage: 10 mg, qd
     Route: 048
     Dates: start: 201207, end: 20121014
  2. LEVOXYL [Concomitant]
     Indication: HYPOTHYROIDISM
     Dosage: 50 ?g daily
     Route: 065
  3. CELEXA [Concomitant]
     Indication: PRODUCT USED FOR UNKNOWN INDICATION
     Dosage: 10 mg, qd
     Route: 065
  4. AMILORIDE [Concomitant]
     Indication: HYPERTENSION
     Dosage: 5 mg, bid
     Route: 065

REACTIONS (4)
  - Myalgia [Not Recovered/Not Resolved]
  - Back pain [Recovered/Resolved]
  - Muscular weakness [Not Recovered/Not Resolved]
  - Musculoskeletal disorder [Not Recovered/Not Resolved]
